FAERS Safety Report 6771338-8 (Version None)
Quarter: 2010Q2

REPORT INFORMATION
  Report Type: 
  Country: None (occurrence: None)
  Receive Date: 20100616
  Receipt Date: 20100608
  Transmission Date: 20101027
  Serious: Yes (Death, Hospitalization)
  Sender: FDA-Public Use
  Company Number: JP-BRISTOL-MYERS SQUIBB COMPANY-13717079

PATIENT
  Age: 73 Year
  Sex: Male

DRUGS (3)
  1. BARACLUDE [Suspect]
     Indication: HEPATITIS B
     Route: 048
     Dates: start: 20070115
  2. URINORM [Suspect]
     Route: 048
     Dates: start: 19930101
  3. CONIEL [Suspect]
     Route: 048
     Dates: start: 20020101

REACTIONS (2)
  - ATRIOVENTRICULAR BLOCK COMPLETE [None]
  - DEATH [None]
